FAERS Safety Report 7740521-7 (Version None)
Quarter: 2011Q3

REPORT INFORMATION
  Report Type: 
  Country: None (occurrence: None)
  Receive Date: 20110909
  Receipt Date: 20110830
  Transmission Date: 20111222
  Serious: Yes (Hospitalization, Disabling)
  Sender: FDA-Public Use
  Company Number: JP-PFIZER INC-2011167289

PATIENT
  Age: 49 Year
  Sex: Male
  Weight: 79.5 kg

DRUGS (3)
  1. ATORVASTATIN CALCIUM [Suspect]
     Indication: HYPERCHOLESTEROLAEMIA
     Dosage: 10 MG, 1X/DAY
     Route: 048
     Dates: start: 20110124
  2. MICARDIS [Concomitant]
     Dosage: UNK
     Route: 048
  3. AMLODIPINE [Concomitant]
     Dosage: UNK
     Route: 048

REACTIONS (2)
  - CEREBROVASCULAR DISORDER [None]
  - CEREBRAL HAEMORRHAGE [None]
